FAERS Safety Report 5259242-8 (Version None)
Quarter: 2007Q1

REPORT INFORMATION
  Report Type: 
  Country: None (occurrence: None)
  Receive Date: 20070308
  Receipt Date: 20070226
  Transmission Date: 20070707
  Serious: Yes (Hospitalization, Other)
  Sender: FDA-Public Use
  Company Number: US-PFIZER INC-2007015614

PATIENT
  Sex: Male
  Weight: 68 kg

DRUGS (3)
  1. XANAX [Suspect]
     Indication: ANXIETY
  2. CYMBALTA [Suspect]
     Indication: ANXIETY
  3. BENTYL [Concomitant]
     Indication: IRRITABLE BOWEL SYNDROME

REACTIONS (6)
  - ACTIVITIES OF DAILY LIVING IMPAIRED [None]
  - ANORGASMIA [None]
  - DRY MOUTH [None]
  - OVERDOSE [None]
  - SOMNOLENCE [None]
  - SUICIDAL IDEATION [None]
